FAERS Safety Report 5072753-3 (Version None)
Quarter: 2006Q3

REPORT INFORMATION
  Report Type: 
  Country: None (occurrence: None)
  Receive Date: 20060807
  Receipt Date: 20060726
  Transmission Date: 20061208
  Serious: Yes (Other)
  Sender: FDA-Public Use
  Company Number: 2006UW15134

PATIENT
  Age: 85 Year
  Sex: Male
  Weight: 59.1 kg

DRUGS (4)
  1. SEROQUEL [Suspect]
     Indication: SCHIZOPHRENIA
     Route: 048
     Dates: start: 20060101, end: 20060601
  2. SEROQUEL [Suspect]
     Route: 048
     Dates: start: 20060601
  3. INDERAL [Concomitant]
     Indication: BLOOD PRESSURE INCREASED
     Route: 048
  4. BLOOD PRESSURE MEDICATION [Concomitant]
     Indication: BLOOD PRESSURE INCREASED

REACTIONS (2)
  - FALL [None]
  - GAIT DISTURBANCE [None]
